FAERS Safety Report 10273290 (Version 1)
Quarter: 2014Q3

REPORT INFORMATION
  Report Type: Spontaneous
  Country: US (occurrence: US)
  Receive Date: 20140702
  Receipt Date: 20140702
  Transmission Date: 20150326
  Serious: Yes (Hospitalization, Other)
  Sender: FDA-Public Use
  Company Number: US-SA-2014SA087540

PATIENT
  Sex: Female

DRUGS (1)
  1. AMBIEN [Suspect]
     Active Substance: ZOLPIDEM TARTRATE
     Route: 065

REACTIONS (9)
  - Dry mouth [Unknown]
  - Drug ineffective [Unknown]
  - Gastritis [Unknown]
  - Incontinence [Unknown]
  - Insomnia [Unknown]
  - Basedow^s disease [Unknown]
  - Neuropathy peripheral [Unknown]
  - Solar lentigo [Unknown]
  - Malaise [Unknown]
